FAERS Safety Report 24329960 (Version 2)
Quarter: 2024Q3

REPORT INFORMATION
  Report Type: Spontaneous
  Country: US (occurrence: US)
  Receive Date: 20240917
  Receipt Date: 20240917
  Transmission Date: 20241016
  Serious: No
  Sender: BIOMARIN
  Company Number: US-BIOMARINAP-US-2024-160413

PATIENT

DRUGS (7)
  1. PALYNZIQ [Suspect]
     Active Substance: PEGVALIASE-PQPZ
     Indication: Phenylketonuria
     Dosage: 2.5 MILLIGRAM, QD
     Route: 058
  2. KUVAN [Suspect]
     Active Substance: SAPROPTERIN DIHYDROCHLORIDE
     Indication: Phenylketonuria
     Dosage: UNK
     Route: 065
  3. SECUKINUMAB [Concomitant]
     Active Substance: SECUKINUMAB
     Indication: Psoriasis
  4. SECUKINUMAB [Concomitant]
     Active Substance: SECUKINUMAB
     Indication: Psoriatic arthropathy
  5. MELOXICAM [Concomitant]
     Active Substance: MELOXICAM
     Indication: Psoriasis
  6. MELOXICAM [Concomitant]
     Active Substance: MELOXICAM
     Indication: Psoriatic arthropathy
  7. CETIRIZINE [Concomitant]
     Active Substance: CETIRIZINE HYDROCHLORIDE
     Indication: Premedication
     Dosage: 10 UNK, QD

REACTIONS (2)
  - Arthralgia [Unknown]
  - Injection site reaction [Unknown]
